FAERS Safety Report 7469388-1 (Version None)
Quarter: 2011Q2

REPORT INFORMATION
  Report Type: 
  Country: None (occurrence: None)
  Receive Date: 20110510
  Receipt Date: 20110502
  Transmission Date: 20111010
  Serious: Yes (Hospitalization, Other)
  Sender: FDA-Public Use
  Company Number: FR-PFIZER INC-2011093646

PATIENT
  Age: 34 Year
  Sex: Female

DRUGS (3)
  1. TACROLIMUS [Suspect]
     Dosage: 4 MG, 1X/DAY
     Route: 048
     Dates: start: 20051115, end: 20060626
  2. SIROLIMUS [Suspect]
     Dosage: UNK
     Dates: start: 20050522, end: 20051114
  3. SIROLIMUS [Suspect]
     Dosage: UNK
     Dates: start: 20060626

REACTIONS (3)
  - PANCREAS TRANSPLANT REJECTION [None]
  - HYPERGLYCAEMIA [None]
  - PANCREATIC ENZYMES INCREASED [None]
